FAERS Safety Report 20157497 (Version 1)
Quarter: 2021Q4

REPORT INFORMATION
  Report Type: Report from Study
  Country: CO (occurrence: CO)
  Receive Date: 20211207
  Receipt Date: 20211207
  Transmission Date: 20220303
  Serious: Yes (Other)
  Sender: FDA-Public Use
  Company Number: CO-NOVARTISPH-NVSC2021CO275330

PATIENT
  Sex: Male
  Weight: 79 kg

DRUGS (7)
  1. LOSARTAN [Suspect]
     Active Substance: LOSARTAN
     Indication: Hypertension
     Dosage: 50 MG, Q12H (STARTED 5 YEARS AGO)
     Route: 048
  2. ATORVASTATIN [Suspect]
     Active Substance: ATORVASTATIN
     Indication: Hypertension
     Dosage: 20 MG, QD (STARTED 3 YEARS AGO)
     Route: 048
  3. SANDOSTATIN LAR DEPOT [Suspect]
     Active Substance: OCTREOTIDE ACETATE
     Indication: Gastroenteropancreatic neuroendocrine tumour disease
     Dosage: 30 MG, QMO (STARTED 2 YEARS AND A HALF AGO)
     Route: 030
  4. SANDOSTATIN LAR DEPOT [Suspect]
     Active Substance: OCTREOTIDE ACETATE
  5. SANDOSTATIN LAR DEPOT [Suspect]
     Active Substance: OCTREOTIDE ACETATE
  6. AMLODIPINE [Concomitant]
     Active Substance: AMLODIPINE BESYLATE
     Indication: Hypertension
     Dosage: 5 MG, QD (STARTED 3 YEARS AGO)
     Route: 048
  7. EVEROLIMUS [Concomitant]
     Active Substance: EVEROLIMUS
     Indication: Gastroenteropancreatic neuroendocrine tumour disease
     Dosage: 10 MG, QD (STARTED 6 MONTHS AGO)
     Route: 048
     Dates: start: 2021

REACTIONS (2)
  - Neuroendocrine carcinoma [Unknown]
  - Off label use [Unknown]
